FAERS Safety Report 21079290 (Version 2)
Quarter: 2022Q3

REPORT INFORMATION
  Report Type: Spontaneous
  Country: BE (occurrence: BE)
  Receive Date: 20220714
  Receipt Date: 20220718
  Transmission Date: 20221026
  Serious: Yes (Death, Life-Threatening, Hospitalization, Other)
  Sender: FDA-Public Use
  Company Number: BE-CELLTRION INC.-2022BE010808

PATIENT

DRUGS (13)
  1. RITUXIMAB [Suspect]
     Active Substance: RITUXIMAB
     Indication: B-cell lymphoma
     Route: 042
  2. CARMUSTINE [Suspect]
     Active Substance: CARMUSTINE
     Indication: B-cell lymphoma
  3. CYTARABINE [Suspect]
     Active Substance: CYTARABINE
     Indication: B-cell lymphoma
  4. ETOPOSIDE [Suspect]
     Active Substance: ETOPOSIDE
     Indication: B-cell lymphoma
  5. MELPHALAN [Suspect]
     Active Substance: MELPHALAN
     Indication: B-cell lymphoma
     Route: 042
  6. GANCICLOVIR SODIUM [Suspect]
     Active Substance: GANCICLOVIR SODIUM
     Indication: Human herpesvirus 6 encephalitis
     Dosage: 5 MG/KG EVERY 12 HOURS
  7. ACYCLOVIR [Concomitant]
     Active Substance: ACYCLOVIR
     Indication: Evidence based treatment
  8. ACYCLOVIR [Concomitant]
     Active Substance: ACYCLOVIR
     Indication: Herpes simplex encephalitis
  9. ACYCLOVIR [Concomitant]
     Active Substance: ACYCLOVIR
     Indication: Human herpesvirus 6 encephalitis
  10. GANCICLOVIR [Concomitant]
     Active Substance: GANCICLOVIR
     Indication: Evidence based treatment
     Dosage: 5 MG/KG INTRAVENOUSLY EVERY 12 H
     Route: 042
  11. GANCICLOVIR [Concomitant]
     Active Substance: GANCICLOVIR
     Indication: Herpes simplex encephalitis
  12. FOSCARNET [Concomitant]
     Active Substance: FOSCARNET
     Indication: Human herpesvirus 6 encephalitis
     Dosage: 60 MG/KG, Q8HR; 30 DAYS AFTER STARTING INITIAL TREATMENT
  13. AMPHOTERICIN B [Concomitant]
     Active Substance: AMPHOTERICIN B
     Indication: Human herpesvirus 6 encephalitis

REACTIONS (5)
  - Death [Fatal]
  - Depressed level of consciousness [Recovering/Resolving]
  - Pneumonia [Unknown]
  - Human herpesvirus 6 infection reactivation [Unknown]
  - Off label use [Unknown]
